FAERS Safety Report 7176632-7 (Version None)
Quarter: 2010Q4

REPORT INFORMATION
  Report Type: 
  Country: None (occurrence: None)
  Receive Date: 20101220
  Receipt Date: 20101207
  Transmission Date: 20110411
  Serious: Yes (Other)
  Sender: FDA-Public Use
  Company Number: PHHY2010JP83151

PATIENT
  Age: 9 Year
  Sex: Female

DRUGS (2)
  1. PAMIDRONATE DISODIUM [Suspect]
     Indication: LANGERHANS' CELL HISTIOCYTOSIS
     Dosage: UNK
     Route: 042
  2. MELOXICAM [Concomitant]

REACTIONS (1)
  - LANGERHANS' CELL HISTIOCYTOSIS [None]
